FAERS Safety Report 9945285 (Version 1)
Quarter: 2014Q1

REPORT INFORMATION
  Report Type: Report from Study
  Country: US (occurrence: US)
  Receive Date: 20140303
  Receipt Date: 20140303
  Transmission Date: 20141002
  Serious: No
  Sender: FDA-Public Use
  Company Number: US-ABBVIE-13P-163-1050683-00

PATIENT
  Age: 58 Year
  Sex: Female

DRUGS (4)
  1. HUMIRA [Suspect]
     Indication: RHEUMATOID ARTHRITIS
     Dates: start: 201301
  2. FLONASE [Concomitant]
     Indication: RHINITIS ALLERGIC
     Dosage: 1 SPRAY IN EACH NARE
  3. LEVOCETIRIZINE [Concomitant]
     Indication: RHINITIS ALLERGIC
     Dosage: 5 MG
  4. MELOXICAM [Concomitant]
     Indication: PAIN
     Dosage: 15 MG DAILY

REACTIONS (1)
  - Injection site pain [Recovered/Resolved]
